FAERS Safety Report 4672983-6 (Version None)
Quarter: 2005Q2

REPORT INFORMATION
  Report Type: 
  Country: None (occurrence: None)
  Receive Date: 20050524
  Receipt Date: 20050516
  Transmission Date: 20051028
  Serious: Yes (Hospitalization)
  Sender: FDA-Public Use
  Company Number: US-MERCK-0505USA01872

PATIENT
  Age: 73 Year
  Sex: Female

DRUGS (3)
  1. VYTORIN [Suspect]
     Indication: BLOOD CHOLESTEROL INCREASED
     Route: 048
     Dates: start: 20050420, end: 20050501
  2. ATENOLOL [Concomitant]
     Route: 065
  3. HYDRODIURIL [Concomitant]
     Route: 048

REACTIONS (1)
  - CHEST PAIN [None]
